FAERS Safety Report 10189064 (Version 1)
Quarter: 2014Q2

REPORT INFORMATION
  Report Type: Spontaneous
  Country: US (occurrence: US)
  Receive Date: 20140522
  Receipt Date: 20140522
  Transmission Date: 20141212
  Serious: No
  Sender: FDA-Public Use
  Company Number: US-ASTRAZENECA-2013SE34748

PATIENT
  Age: 59 Year
  Sex: Female
  Weight: 58.1 kg

DRUGS (11)
  1. PULMICORT [Suspect]
     Route: 055
  2. BROVANA [Suspect]
     Indication: BRONCHOSPASM
     Dates: start: 201303
  3. BROVANA [Suspect]
     Indication: COUGH
     Dates: start: 201303
  4. ALBUTEROL [Suspect]
  5. INTERFERON [Concomitant]
  6. PREDNISONE [Concomitant]
  7. CODEINE [Concomitant]
  8. DEXILANT [Concomitant]
  9. COMPAZINE [Concomitant]
  10. FOSAMAX [Concomitant]
  11. VITAMIN D [Concomitant]

REACTIONS (21)
  - Dry mouth [Not Recovered/Not Resolved]
  - Muscle spasms [Not Recovered/Not Resolved]
  - Blood pressure increased [Not Recovered/Not Resolved]
  - Nausea [Not Recovered/Not Resolved]
  - Vomiting [Not Recovered/Not Resolved]
  - Dizziness [Not Recovered/Not Resolved]
  - Toothache [Not Recovered/Not Resolved]
  - Tremor [Not Recovered/Not Resolved]
  - Blood potassium decreased [Not Recovered/Not Resolved]
  - Blood potassium increased [Not Recovered/Not Resolved]
  - Blood glucose increased [Not Recovered/Not Resolved]
  - Blood pressure decreased [Not Recovered/Not Resolved]
  - Tooth disorder [Not Recovered/Not Resolved]
  - Gingival recession [Not Recovered/Not Resolved]
  - Vertigo [Not Recovered/Not Resolved]
  - Heart rate increased [Not Recovered/Not Resolved]
  - Heart rate irregular [Not Recovered/Not Resolved]
  - Acidosis [Not Recovered/Not Resolved]
  - Fatigue [Not Recovered/Not Resolved]
  - Nervousness [Not Recovered/Not Resolved]
  - Insomnia [Not Recovered/Not Resolved]
